FAERS Safety Report 12062582 (Version 1)
Quarter: 2016Q1

REPORT INFORMATION
  Report Type: Spontaneous
  Country: US (occurrence: US)
  Receive Date: 20160210
  Receipt Date: 20160210
  Transmission Date: 20160526
  Serious: Yes (Hospitalization, Other)
  Sender: FDA-Public Use
  Company Number: US-MYLANLABS-2016M1005203

PATIENT

DRUGS (2)
  1. ROCURONIUM [Suspect]
     Active Substance: ROCURONIUM BROMIDE
     Indication: PARALYSIS
     Dosage: UNK
  2. CISATRACURIUM. [Suspect]
     Active Substance: CISATRACURIUM
     Indication: PARALYSIS
     Dosage: UNK

REACTIONS (1)
  - Drug resistance [Unknown]
